FAERS Safety Report 17416301 (Version 1)
Quarter: 2020Q1

REPORT INFORMATION
  Report Type: Spontaneous
  Country: US (occurrence: US)
  Receive Date: 20200130
  Receipt Date: 20200130
  Transmission Date: 20200409
  Serious: No
  Sender: FDA-Public Use
  Company Number: None

PATIENT
  Age: 39 Year
  Sex: Female

DRUGS (1)
  1. VOTRIENT [Suspect]
     Active Substance: PAZOPANIB HYDROCHLORIDE
     Route: 048
     Dates: start: 20191119, end: 20200116

REACTIONS (7)
  - Confusional state [None]
  - Electrolyte imbalance [None]
  - Necrosis [None]
  - Liver injury [None]
  - Cardiac failure [None]
  - Fatigue [None]
  - Fluid retention [None]

NARRATIVE: CASE EVENT DATE: 20200130
